FAERS Safety Report 16548679 (Version 2)
Quarter: 2019Q3

REPORT INFORMATION
  Report Type: Report from Study
  Country: JP (occurrence: JP)
  Receive Date: 20190709
  Receipt Date: 20190716
  Transmission Date: 20191004
  Serious: Yes (Death)
  Sender: FDA-Public Use
  Company Number: JP-PFIZER INC-2019246193

PATIENT
  Age: 42 Year
  Sex: Female
  Weight: 55 kg

DRUGS (7)
  1. BESPONSA [Suspect]
     Active Substance: INOTUZUMAB OZOGAMICIN
     Dosage: 0.5 MG/M2, 1X/DAY
     Route: 041
     Dates: start: 20190226, end: 20190226
  2. BESPONSA [Suspect]
     Active Substance: INOTUZUMAB OZOGAMICIN
     Indication: ACUTE LYMPHOCYTIC LEUKAEMIA RECURRENT
     Dosage: 0.8 MG/M2, 1X/DAY
     Route: 041
     Dates: start: 20190212, end: 20190212
  3. BESPONSA [Suspect]
     Active Substance: INOTUZUMAB OZOGAMICIN
     Dosage: 0.8 MG, DAILY
     Route: 041
     Dates: start: 20190530, end: 20190530
  4. BESPONSA [Suspect]
     Active Substance: INOTUZUMAB OZOGAMICIN
     Dosage: 1.3 MG, DAILY
     Route: 041
     Dates: start: 20190523, end: 20190523
  5. SANDIMMUN [Concomitant]
     Active Substance: CYCLOSPORINE
     Indication: IMMUNOSUPPRESSION
     Dosage: UNK
     Route: 042
     Dates: start: 20190415, end: 20190604
  6. BESPONSA [Suspect]
     Active Substance: INOTUZUMAB OZOGAMICIN
     Dosage: UNK
     Route: 041
     Dates: start: 20190513, end: 20190513
  7. BESPONSA [Suspect]
     Active Substance: INOTUZUMAB OZOGAMICIN
     Dosage: 0.5 MG/M2, 1X/DAY
     Route: 041
     Dates: start: 20190219, end: 20190219

REACTIONS (1)
  - Neoplasm recurrence [Fatal]

NARRATIVE: CASE EVENT DATE: 20190610
